FAERS Safety Report 4958881-9 (Version None)
Quarter: 2006Q1

REPORT INFORMATION
  Report Type: 
  Country: None (occurrence: None)
  Receive Date: 20060329
  Receipt Date: 20060329
  Transmission Date: 20060701
  Serious: Yes (Hospitalization, Other)
  Sender: FDA-Public Use
  Company Number: None

PATIENT
  Sex: Male
  Weight: 87.0906 kg

DRUGS (3)
  1. CLOZARIL [Suspect]
     Indication: PARANOIA
     Dates: start: 20060301
  2. CLOZARIL [Suspect]
     Indication: SCHIZOPHRENIA
     Dates: start: 20060301
  3. CLOZARIL [Suspect]

REACTIONS (3)
  - ABNORMAL BEHAVIOUR [None]
  - IRRITABILITY [None]
  - THERAPEUTIC RESPONSE UNEXPECTED WITH DRUG SUBSTITUTION [None]
